FAERS Safety Report 4806663-0 (Version None)
Quarter: 2005Q4

REPORT INFORMATION
  Report Type: 
  Country: None (occurrence: None)
  Receive Date: 20051019
  Receipt Date: 20051005
  Transmission Date: 20060501
  Serious: Yes (Hospitalization, Other)
  Sender: FDA-Public Use
  Company Number: US_0505117594

PATIENT
  Age: 61 Year
  Sex: Female
  Weight: 75 kg

DRUGS (30)
  1. ZYPREXA [Suspect]
     Indication: BIPOLAR DISORDER
     Dosage: 50 MG DAY
     Dates: start: 20011205, end: 20040730
  2. ARICEPT [Concomitant]
  3. XANAX [Concomitant]
  4. FIORICET [Concomitant]
  5. LOPRESSOR [Concomitant]
  6. PLAVIX [Concomitant]
  7. NITRO-DUR [Concomitant]
  8. LANOXIN [Concomitant]
  9. CAPOTEN [Concomitant]
  10. LASIX [Concomitant]
  11. FENTANYL [Concomitant]
  12. NEXIUM [Concomitant]
  13. PROTONIX [Concomitant]
  14. MONOPRIL [Concomitant]
  15. CELEXA [Concomitant]
  16. GLUCOPHAGE [Concomitant]
  17. AVANDIA [Concomitant]
  18. LANTUS [Concomitant]
  19. METHYLPREDNISOLON (METHYLPREDNISOLONE) [Concomitant]
  20. GEMFIBROZIL [Concomitant]
  21. ATROVENT [Concomitant]
  22. ALBUTEROL [Concomitant]
  23. CARDIZEM [Concomitant]
  24. LEVOFLOXACIN [Concomitant]
  25. OXYCODONE [Concomitant]
  26. STARLIX [Concomitant]
  27. TRAZODONE HCL [Concomitant]
  28. REMINYL [Concomitant]
  29. TRICOR [Concomitant]
  30. SEROQUEL [Concomitant]

REACTIONS (26)
  - BLOOD CHLORIDE DECREASED [None]
  - BLOOD CREATINE PHOSPHOKINASE INCREASED [None]
  - BLOOD GLUCOSE INCREASED [None]
  - BLOOD TRIGLYCERIDES INCREASED [None]
  - BUNDLE BRANCH BLOCK LEFT [None]
  - CARDIAC FAILURE CONGESTIVE [None]
  - DIABETES MELLITUS INADEQUATE CONTROL [None]
  - DIABETES MELLITUS NON-INSULIN-DEPENDENT [None]
  - DIZZINESS [None]
  - FATIGUE [None]
  - HEPATIC ENZYME INCREASED [None]
  - HEPATIC STEATOSIS [None]
  - HYPERCHOLESTEROLAEMIA [None]
  - HYPONATRAEMIA [None]
  - HYPOXIA [None]
  - INFLUENZA [None]
  - LOSS OF CONSCIOUSNESS [None]
  - MYOCARDIAL INFARCTION [None]
  - NEUROGENIC BLADDER [None]
  - PNEUMONIA [None]
  - PRESCRIBED OVERDOSE [None]
  - RESPIRATORY FAILURE [None]
  - SLEEP APNOEA SYNDROME [None]
  - THERAPEUTIC AGENT TOXICITY [None]
  - URINARY RETENTION [None]
  - VISION BLURRED [None]
